FAERS Safety Report 15279869 (Version 1)
Quarter: 2018Q3

REPORT INFORMATION
  Report Type: Spontaneous
  Country: US (occurrence: US)
  Receive Date: 20180730
  Receipt Date: 20180730
  Transmission Date: 20181010
  Serious: Yes (Other)
  Sender: FDA-Public Use
  Company Number: None

PATIENT
  Age: 28 Year
  Sex: Female
  Weight: 74.84 kg

DRUGS (1)
  1. PARAGARD T 380A [Suspect]
     Active Substance: COPPER
     Dates: start: 20150208

REACTIONS (6)
  - Vaginal discharge [None]
  - Pelvic pain [None]
  - Alopecia [None]
  - Menorrhagia [None]
  - Acne [None]
  - Arthralgia [None]

NARRATIVE: CASE EVENT DATE: 20160610
